FAERS Safety Report 8881071 (Version 1)
Quarter: 2012Q4

REPORT INFORMATION
  Report Type: 
  Country: GB (occurrence: GB)
  Receive Date: 20121101
  Receipt Date: 20121101
  Transmission Date: 20130627
  Serious: Yes (Other)
  Sender: FDA-Public Use
  Company Number: GB-PFIZER INC-2012266383

PATIENT
  Age: 63 Year
  Sex: Female

DRUGS (4)
  1. IRINOTECAN HCL [Suspect]
     Indication: COLORECTAL CANCER METASTATIC
     Route: 065
  2. FLUOROURACIL [Suspect]
     Indication: COLORECTAL CANCER METASTATIC
     Route: 065
  3. ELOXATIN [Suspect]
     Indication: METASTATIC COLORECTAL CANCER
     Route: 065
  4. FOLINIC ACID [Suspect]
     Indication: METASTATIC COLORECTAL CANCER
     Route: 065

REACTIONS (5)
  - Device related infection [Unknown]
  - Neuropathy peripheral [Unknown]
  - Hypersensitivity [Unknown]
  - Lethargy [Unknown]
  - Mucosal inflammation [Unknown]
